FAERS Safety Report 8564627-8 (Version None)
Quarter: 2012Q3

REPORT INFORMATION
  Report Type: 
  Country: None (occurrence: None)
  Receive Date: 20120727
  Receipt Date: 20120727
  Transmission Date: 20120928
  Serious: No
  Sender: FDA-Public Use
  Company Number: None

PATIENT
  Age: 32 Year
  Sex: Male

DRUGS (1)
  1. SUMATRIPTAN [Suspect]
     Indication: CLUSTER HEADACHE
     Dosage: 1 SHOT ONSET OF HEADACHE IM, SINCE 2001 I BELIEVE
     Route: 030
     Dates: start: 20010101

REACTIONS (10)
  - PANCYTOPENIA [None]
  - INTESTINAL ISCHAEMIA [None]
  - PRINZMETAL ANGINA [None]
  - HAEMOLYTIC ANAEMIA [None]
  - PULMONARY EMBOLISM [None]
  - SHOCK [None]
  - ATRIAL FIBRILLATION [None]
  - THROMBOCYTOPENIA [None]
  - CARDIOMYOPATHY [None]
  - THROMBOPHLEBITIS [None]
